FAERS Safety Report 9254797 (Version 1)
Quarter: 2013Q1

REPORT INFORMATION
  Report Type: Spontaneous
  Country: US (occurrence: None)
  Receive Date: 20121212
  Receipt Date: 20121212
  Transmission Date: 20140127
  Serious: No
  Sender: FDA-Public Use
  Company Number: 1209USA011706

PATIENT
  Age: 54 Year
  Sex: Male
  Weight: 107.9 kg

DRUGS (3)
  1. VICTRELIS (BOCEPREVIR) CAPSULE [Suspect]
     Indication: HEPATITIS C
     Dates: start: 20120809
  2. REBETOL (RIBAVIRIN) CAPSULE [Suspect]
     Indication: HEPATITIS C
     Dates: start: 20120715
  3. PEGASYS (PEGINTERFERON ALFA-2A) [Concomitant]
     Dates: start: 20120715

REACTIONS (1)
  - Rash pruritic [None]
